FAERS Safety Report 9127387 (Version 1)
Quarter: 2013Q1

REPORT INFORMATION
  Report Type: Spontaneous
  Country: US (occurrence: US)
  Receive Date: 20130228
  Receipt Date: 20130228
  Transmission Date: 20140127
  Serious: No
  Sender: FDA-Public Use
  Company Number: US-GLAXOSMITHKLINE-A0973038A

PATIENT
  Age: 42 Year
  Sex: Female

DRUGS (7)
  1. LAMICTAL [Suspect]
     Indication: BIPOLAR DISORDER
     Dosage: 100MG PER DAY
     Route: 048
     Dates: start: 201007
  2. LAMICTAL [Suspect]
     Indication: BIPOLAR DISORDER
     Dosage: 100MG PER DAY
     Route: 048
     Dates: start: 201006, end: 201007
  3. LAMOTRIGINE [Suspect]
     Indication: BIPOLAR DISORDER
     Dosage: 100MG PER DAY
     Route: 048
     Dates: start: 20120311, end: 20120409
  4. TOPAMAX [Concomitant]
  5. EFFEXOR [Concomitant]
  6. ESTRADIOL [Concomitant]
     Route: 061
  7. NEURONTIN [Concomitant]

REACTIONS (3)
  - Alopecia [Unknown]
  - Weight increased [Unknown]
  - Food craving [Unknown]
